FAERS Safety Report 21651560 (Version 1)
Quarter: 2022Q4

REPORT INFORMATION
  Report Type: Spontaneous
  Country: US (occurrence: US)
  Receive Date: 20221128
  Receipt Date: 20221128
  Transmission Date: 20230113
  Serious: Yes (Hospitalization, Other)
  Sender: FDA-Public Use
  Company Number: US-PFIZER INC-PV202200110046

PATIENT
  Age: 68 Year
  Sex: Female

DRUGS (1)
  1. IBRANCE [Suspect]
     Active Substance: PALBOCICLIB
     Indication: Breast cancer female
     Dosage: 125 MG
     Dates: end: 2022

REACTIONS (9)
  - Pneumonia [Unknown]
  - Second primary malignancy [Unknown]
  - Hepatic neoplasm [Unknown]
  - Lung neoplasm malignant [Unknown]
  - Pulmonary oedema [Unknown]
  - Wound [Unknown]
  - Wheezing [Unknown]
  - Dyspnoea [Unknown]
  - Skin disorder [Unknown]
